FAERS Safety Report 6169740-0 (Version None)
Quarter: 2009Q2

REPORT INFORMATION
  Report Type: 
  Country: None (occurrence: None)
  Receive Date: 20090428
  Receipt Date: 20090420
  Transmission Date: 20091009
  Serious: Yes (Hospitalization, Other)
  Sender: FDA-Public Use
  Company Number: DE-ROCHE-628343

PATIENT
  Age: 32 Month
  Sex: Male

DRUGS (5)
  1. DIAZEPAM [Suspect]
     Route: 065
  2. CLONAZEPAM [Suspect]
     Route: 065
  3. PHENYTOIN [Suspect]
     Route: 065
  4. PHENOBARBITAL TAB [Suspect]
     Route: 065
  5. VALPROIC ACID [Suspect]
     Route: 065

REACTIONS (5)
  - ATAXIA [None]
  - COGNITIVE DISORDER [None]
  - HYPOTONIA [None]
  - THERAPEUTIC PRODUCT INEFFECTIVE [None]
  - VISION BLURRED [None]
